FAERS Safety Report 7340392-7 (Version None)
Quarter: 2011Q1

REPORT INFORMATION
  Report Type: 
  Country: None (occurrence: None)
  Receive Date: 20110309
  Receipt Date: 20110302
  Transmission Date: 20110831
  Serious: No
  Sender: FDA-Public Use
  Company Number: US-BIOGENIDEC-2011BI008294

PATIENT
  Age: 27 Year
  Sex: Female

DRUGS (1)
  1. TYSABRI [Suspect]
     Indication: MULTIPLE SCLEROSIS
     Route: 042
     Dates: start: 20100318

REACTIONS (6)
  - INSOMNIA [None]
  - DISTURBANCE IN ATTENTION [None]
  - MOOD SWINGS [None]
  - FATIGUE [None]
  - FRUSTRATION [None]
  - PAIN IN EXTREMITY [None]
